FAERS Safety Report 5434244-7 (Version None)
Quarter: 2007Q3

REPORT INFORMATION
  Report Type: 
  Country: None (occurrence: None)
  Receive Date: 20070831
  Receipt Date: 20070720
  Transmission Date: 20080115
  Serious: No
  Sender: FDA-Public Use
  Company Number: A0665240A

PATIENT
  Age: 58 Year
  Sex: Female

DRUGS (7)
  1. ALLI [Suspect]
     Dates: start: 20070628, end: 20070718
  2. ELAVIL [Concomitant]
     Indication: FIBROMYALGIA
  3. ANTIBIOTICS [Concomitant]
  4. NEXIUM [Concomitant]
  5. MYOCALCINNS [Concomitant]
     Indication: OSTEOPOROSIS
  6. MULTIVITAMIN [Concomitant]
  7. CHONDROITIN [Concomitant]

REACTIONS (3)
  - ABDOMINAL PAIN UPPER [None]
  - CHANGE OF BOWEL HABIT [None]
  - PHARMACEUTICAL PRODUCT COMPLAINT [None]
